FAERS Safety Report 19272979 (Version 6)
Quarter: 2021Q3

REPORT INFORMATION
  Report Type: Spontaneous
  Country: IE (occurrence: IE)
  Receive Date: 20210518
  Receipt Date: 20210903
  Transmission Date: 20211014
  Serious: Yes (Other)
  Sender: FDA-Public Use
  Company Number: IE-ORGANON-O2105IRL001252

PATIENT
  Age: 35 Year
  Sex: Female
  Weight: 80 kg

DRUGS (4)
  1. SERTRALINE [Concomitant]
     Active Substance: SERTRALINE HYDROCHLORIDE
     Dosage: UNK
  2. OMEPRAZOLE. [Concomitant]
     Active Substance: OMEPRAZOLE
     Dosage: 20 MILLIGRAM, OCCASIONALLY
  3. IMPLANON NXT [Suspect]
     Active Substance: ETONOGESTREL
     Indication: CONTRACEPTION
     Dosage: IMPLANT FOR SUBDERMAL USE, IN LEFT UPPER ARM
     Route: 059
     Dates: start: 20200922, end: 20210419
  4. IBUPROFEN. [Concomitant]
     Active Substance: IBUPROFEN
     Dosage: 400 MILLIGRAM, OCCASIONALLY

REACTIONS (7)
  - Heavy menstrual bleeding [Unknown]
  - Pregnancy test positive [Unknown]
  - Device breakage [Recovered/Resolved]
  - Abortion spontaneous [Recovered/Resolved with Sequelae]
  - Unintended pregnancy [Recovered/Resolved]
  - Pruritus [Unknown]
  - Pregnancy with implant contraceptive [Recovered/Resolved]

NARRATIVE: CASE EVENT DATE: 2021
